FAERS Safety Report 25953390 (Version 1)
Quarter: 2025Q4

REPORT INFORMATION
  Report Type: Spontaneous
  Country: US (occurrence: US)
  Receive Date: 20251023
  Receipt Date: 20251023
  Transmission Date: 20260117
  Serious: No
  Sender: BRISTOL-MYERS SQUIBB COMPANY
  Company Number: US-BRISTOL-MYERS SQUIBB COMPANY-2025-143587

PATIENT
  Age: 65 Year
  Sex: Female
  Weight: 58.06 kg

DRUGS (4)
  1. BARACLUDE [Suspect]
     Active Substance: ENTECAVIR
     Indication: Chronic hepatitis B
  2. BARACLUDE [Suspect]
     Active Substance: ENTECAVIR
  3. ROSUVASTATIN [Concomitant]
     Active Substance: ROSUVASTATIN
     Indication: Product used for unknown indication
  4. VITAMINS [Concomitant]
     Active Substance: VITAMINS
     Indication: Product used for unknown indication

REACTIONS (3)
  - Inability to afford medication [Unknown]
  - Therapy interrupted [Unknown]
  - Laboratory test abnormal [Unknown]

NARRATIVE: CASE EVENT DATE: 20230101
